FAERS Safety Report 12361517 (Version 2)
Quarter: 2019Q1

REPORT INFORMATION
  Report Type: Spontaneous
  Country: US (occurrence: US)
  Receive Date: 20160512
  Receipt Date: 20190329
  Transmission Date: 20190417
  Serious: No
  Sender: FDA-Public Use
  Company Number: US-SA-2016SA046951

PATIENT
  Age: 42 Year
  Sex: Male

DRUGS (4)
  1. MIPOMERSEN [Concomitant]
     Active Substance: MIPOMERSEN SODIUM
     Indication: LOW DENSITY LIPOPROTEIN INCREASED
     Dosage: 200 MG,QW
     Dates: start: 20160203
  2. VICTOZA [Concomitant]
     Active Substance: LIRAGLUTIDE
     Indication: BLOOD GLUCOSE INCREASED
     Dosage: UNK
     Dates: start: 201602
  3. PRALUENT [Suspect]
     Active Substance: ALIROCUMAB
     Dosage: UNK
     Route: 058
     Dates: start: 20161102
  4. PRALUENT [Suspect]
     Active Substance: ALIROCUMAB
     Indication: LOW DENSITY LIPOPROTEIN INCREASED
     Dosage: 150 MG,QOW
     Route: 058
     Dates: start: 20150910

REACTIONS (1)
  - Therapeutic response decreased [Unknown]
